FAERS Safety Report 14078543 (Version 1)
Quarter: 2017Q4

REPORT INFORMATION
  Report Type: Spontaneous
  Country: CA (occurrence: None)
  Receive Date: 20171012
  Receipt Date: 20171012
  Transmission Date: 20180321
  Serious: Yes (Death, Hospitalization)
  Sender: FDA-Public Use
  Company Number: None

PATIENT
  Age: 67 Year
  Sex: Female
  Weight: 80.7 kg

DRUGS (2)
  1. MEMANTINE HYDROCHLORIDE. [Suspect]
     Active Substance: MEMANTINE HYDROCHLORIDE
     Dates: end: 20170904
  2. DEXAMETHASONE. [Concomitant]
     Active Substance: DEXAMETHASONE

REACTIONS (8)
  - Disease progression [None]
  - Culture urine positive [None]
  - Metastases to lung [None]
  - Metastases to central nervous system [None]
  - Haemoglobin decreased [None]
  - Blood creatinine increased [None]
  - Gram stain negative [None]
  - Asthenia [None]

NARRATIVE: CASE EVENT DATE: 20170904
